FAERS Safety Report 8411677 (Version 2)
Quarter: 2014Q2

REPORT INFORMATION
  Report Type: Report from Study
  Country: US (occurrence: US)
  Receive Date: 20120217
  Receipt Date: 20140416
  Transmission Date: 20141212
  Serious: Yes (Hospitalization)
  Sender: FDA-Public Use
  Company Number: US-ACTELION-A-NJ2012-60865

PATIENT
  Age: 82 Year
  Sex: Female

DRUGS (16)
  1. TRACLEER [Suspect]
     Indication: PULMONARY ARTERIAL HYPERTENSION
     Dosage: 125 MG, BID
     Route: 048
     Dates: start: 20100922
  2. REVATIO [Concomitant]
     Dosage: 20 MG, TID
  3. ADVAIR [Concomitant]
     Dosage: 2 PUFF, BID
  4. ASPIRIN [Concomitant]
     Dosage: 81 MG, UNK
  5. BETAPACE [Concomitant]
     Dosage: 80 MG, BID
  6. CALCIUM 500+D [Concomitant]
  7. DIOVAN [Concomitant]
     Dosage: 120 MG, BID
  8. OSCAL 500 + D [Concomitant]
  9. PLAVIX [Concomitant]
     Dosage: 75 MG, UNK
  10. POLYETHYLENE GLYCOL [Concomitant]
  11. PROAIR HFA [Concomitant]
     Dosage: 2 PUFF, PRN,  Q4HRS
  12. PROTONIX [Concomitant]
  13. VITAMIN D [Concomitant]
  14. COUMADIN [Concomitant]
     Dosage: 5 MG, UNK
  15. TYLENOL 8 HOUR [Concomitant]
     Dosage: 650 MG, PRN
  16. METOPROLOL SUCCINATE [Concomitant]
     Dosage: 50 MG, UNK

REACTIONS (2)
  - Clostridium difficile colitis [Recovering/Resolving]
  - Gastroenteritis viral [Recovering/Resolving]
